FAERS Safety Report 22519790 (Version 2)
Quarter: 2023Q2

REPORT INFORMATION
  Report Type: Other
  Country: CA (occurrence: None)
  Receive Date: 20230605
  Receipt Date: 20230608
  Transmission Date: 20230722
  Serious: Yes (Other)
  Sender: FDA-Public Use
  Company Number: CA-ROCHE-3359056

PATIENT
  Age: 85 Year
  Sex: Male

DRUGS (1)
  1. BEVACIZUMAB [Suspect]
     Active Substance: BEVACIZUMAB
     Indication: Product used for unknown indication
     Route: 065

REACTIONS (4)
  - Bacterial endophthalmitis [Unknown]
  - Cutibacterium acnes infection [Unknown]
  - Off label use [Unknown]
  - Staphylococcal infection [Unknown]
